FAERS Safety Report 9240713 (Version 2)
Quarter: 2014Q2

REPORT INFORMATION
  Report Type: Spontaneous
  Country: US (occurrence: US)
  Receive Date: 20130418
  Receipt Date: 20140430
  Transmission Date: 20141212
  Serious: Yes (Other)
  Sender: FDA-Public Use
  Company Number: US-SANOFI-AVENTIS-2013SA003719

PATIENT
  Age: 87 Year
  Sex: Female
  Weight: 65.31 kg

DRUGS (7)
  1. LOVENOX [Suspect]
     Indication: DEEP VEIN THROMBOSIS
     Dates: start: 20121012, end: 20121013
  2. LOVENOX [Suspect]
     Indication: DEEP VEIN THROMBOSIS
     Dates: start: 20121005, end: 20121011
  3. LOVENOX [Suspect]
     Indication: DEEP VEIN THROMBOSIS
  4. LOVENOX [Suspect]
     Indication: DEEP VEIN THROMBOSIS
     Dates: start: 20130214
  5. COUMADIN [Suspect]
     Indication: DEEP VEIN THROMBOSIS
     Dates: start: 20130114
  6. ASPIRIN [Concomitant]
     Dates: start: 2010, end: 20130114
  7. LISINOPRIL [Concomitant]
     Dates: start: 2011

REACTIONS (3)
  - Haemoptysis [Unknown]
  - Injection site haemorrhage [Recovered/Resolved]
  - Contusion [Recovered/Resolved]
